FAERS Safety Report 18175323 (Version 2)
Quarter: 2020Q3

REPORT INFORMATION
  Report Type: Spontaneous
  Country: CA (occurrence: CA)
  Receive Date: 20200820
  Receipt Date: 20200917
  Transmission Date: 20201103
  Serious: Yes (Other)
  Sender: FDA-Public Use
  Company Number: CA-VIIV HEALTHCARE LIMITED-CA2020AMR165054

PATIENT
  Age: 47 Year
  Sex: Male

DRUGS (23)
  1. PREZISTA [Interacting]
     Active Substance: DARUNAVIR ETHANOLATE
     Dosage: 600 MG, BID
     Route: 048
  2. PREZISTA [Interacting]
     Active Substance: DARUNAVIR ETHANOLATE
     Indication: HIV INFECTION
     Dosage: 800 MG, QD
     Route: 048
  3. RALTEGRAVIR. [Interacting]
     Active Substance: RALTEGRAVIR
     Indication: HIV INFECTION
     Dosage: 400 MG, BID
  4. TACROLIMUS. [Interacting]
     Active Substance: TACROLIMUS
     Dosage: 0.1 MG, QD
  5. CICLOSPORIN [Interacting]
     Active Substance: CYCLOSPORINE
     Dosage: 20 MG, QD
  6. CICLOSPORIN [Interacting]
     Active Substance: CYCLOSPORINE
     Indication: IMMUNOSUPPRESSION
     Dosage: 25 MG, BID
  7. COBICISTAT + ELVITEGRAVIR + EMTRICITABINE + TENOFOVIR ALAFENAMIDE FUMA [Interacting]
     Active Substance: COBICISTAT\ELVITEGRAVIR\EMTRICITABINE\TENOFOVIR ALAFENAMIDE FUMARATE
     Indication: HIV INFECTION
     Dosage: 1 DF, QD
  8. PREZISTA [Interacting]
     Active Substance: DARUNAVIR ETHANOLATE
     Dosage: 600 MG, BID
     Route: 048
  9. RITONAVIR. [Interacting]
     Active Substance: RITONAVIR
     Indication: HIV INFECTION
     Dosage: 100 MG, BID
  10. CICLOSPORIN [Interacting]
     Active Substance: CYCLOSPORINE
     Dosage: 20 MG, BID
  11. PREZISTA [Interacting]
     Active Substance: DARUNAVIR ETHANOLATE
     Dosage: 600 MG, QD
     Route: 048
  12. TACROLIMUS. [Interacting]
     Active Substance: TACROLIMUS
     Dosage: 0.07 MG, QD
  13. TACROLIMUS. [Interacting]
     Active Substance: TACROLIMUS
     Dosage: 0.5 MG, QD
  14. TRUVADA [Interacting]
     Active Substance: EMTRICITABINE\TENOFOVIR DISOPROXIL FUMARATE
     Indication: HIV INFECTION
     Dosage: 1 DF, QD
  15. ABACAVIR. [Interacting]
     Active Substance: ABACAVIR
     Indication: HIV INFECTION
     Dosage: 600 MG, QD
  16. TACROLIMUS. [Interacting]
     Active Substance: TACROLIMUS
     Dosage: 0.2 MG, QD
  17. TACROLIMUS. [Interacting]
     Active Substance: TACROLIMUS
     Indication: IMMUNOSUPPRESSION
     Dosage: 0.5 MG, QD 1 EVERY 1 WEEK
  18. CICLOSPORIN [Interacting]
     Active Substance: CYCLOSPORINE
     Dosage: 3 MG, BID
  19. ETRAVIRINE [Interacting]
     Active Substance: ETRAVIRINE
     Indication: HIV INFECTION
     Dosage: 200 MG, QD
  20. LAMIVUDINE. [Suspect]
     Active Substance: LAMIVUDINE
     Indication: HIV INFECTION
     Dosage: 400 MG, QD
  21. TACROLIMUS. [Interacting]
     Active Substance: TACROLIMUS
     Dosage: 0.5 MG
  22. CICLOSPORIN [Interacting]
     Active Substance: CYCLOSPORINE
     Dosage: 10 MG, BID
  23. CICLOSPORIN [Interacting]
     Active Substance: CYCLOSPORINE
     Dosage: 25 MG, BID

REACTIONS (1)
  - Drug interaction [Unknown]
